FAERS Safety Report 5014942-X (Version None)
Quarter: 2006Q2

REPORT INFORMATION
  Report Type: 
  Country: None (occurrence: None)
  Receive Date: 20060531
  Receipt Date: 20060214
  Transmission Date: 20061013
  Serious: Yes (Hospitalization)
  Sender: FDA-Public Use
  Company Number: US-ROCHE-436815

PATIENT
  Age: 46 Year
  Sex: Male
  Weight: 93.4 kg

DRUGS (15)
  1. ENFUVIRTIDE [Suspect]
     Route: 058
     Dates: start: 20060126, end: 20060201
  2. BLINDED UK-427,857 [Suspect]
     Indication: HIV INFECTION
     Route: 048
     Dates: start: 20060126, end: 20060222
  3. VALTREX [Concomitant]
     Route: 048
     Dates: start: 20010615
  4. TOPROL-XL [Concomitant]
     Route: 048
     Dates: start: 19980615
  5. LIPITOR [Concomitant]
     Route: 048
     Dates: start: 20000615
  6. VALSARTAN [Concomitant]
     Route: 048
     Dates: start: 20020615
  7. XANAX [Concomitant]
     Route: 048
     Dates: start: 20000615
  8. OXYCONTIN [Concomitant]
     Route: 048
     Dates: start: 20010615
  9. WARFARIN SODIUM [Concomitant]
     Route: 048
     Dates: start: 20050615
  10. PREVACID [Concomitant]
     Route: 048
     Dates: start: 20000615
  11. TAMSULOSIN HCL [Concomitant]
     Route: 048
     Dates: start: 20010615
  12. NEURONTIN [Concomitant]
     Route: 048
     Dates: start: 20010615
  13. TENOFOVIR [Concomitant]
     Route: 048
     Dates: start: 20060126, end: 20060301
  14. KALETRA [Concomitant]
     Route: 048
     Dates: start: 20060126, end: 20060301
  15. INVIRASE [Concomitant]
     Route: 048
     Dates: start: 20060126, end: 20060301

REACTIONS (6)
  - ABDOMINAL DISTENSION [None]
  - HYPONATRAEMIA [None]
  - NAUSEA [None]
  - PYREXIA [None]
  - RHABDOMYOLYSIS [None]
  - VOMITING [None]
